FAERS Safety Report 8170644-2 (Version None)
Quarter: 2012Q1

REPORT INFORMATION
  Report Type: 
  Country: None (occurrence: None)
  Receive Date: 20120228
  Receipt Date: 20120216
  Transmission Date: 20120608
  Serious: Yes (Death)
  Sender: FDA-Public Use
  Company Number: IT-CELGENEUS-083-21660-11072938

PATIENT
  Age: 59 Year
  Sex: Male

DRUGS (14)
  1. ARSENICUM ALBUM [Concomitant]
     Dosage: 10 OTHER
     Route: 065
  2. DOXORUBICIN HCL [Concomitant]
     Dosage: 80 MILLIGRAM
     Route: 065
  3. SULFUR [Concomitant]
     Dosage: 10 DROPS
     Route: 065
  4. ABRAXANE [Suspect]
     Route: 013
     Dates: start: 20090128, end: 20090601
  5. T-MELATONINE [Concomitant]
     Dosage: 2 TABLET
     Route: 065
  6. MADOPAR [Concomitant]
     Route: 065
  7. XANAX [Concomitant]
     Dosage: .25 MILLIGRAM
     Route: 065
  8. LENICALM [Concomitant]
     Dosage: 2 TABLET
     Route: 065
  9. SEDA K [Concomitant]
     Dosage: 20 DROPS
     Route: 065
  10. LEVOTHYROXINE SODIUM [Concomitant]
     Dosage: 100 MICROGRAM
     Route: 048
  11. LANTANON [Concomitant]
     Dosage: .5 TABLET
     Route: 065
  12. ZINCUM METALLICUM [Concomitant]
     Dosage: 10 OTHER
     Route: 065
  13. BELLADONNA [Concomitant]
     Dosage: 10 OTHER
     Route: 065
  14. COMTAN [Concomitant]
     Dosage: 400 MILLIGRAM
     Route: 048

REACTIONS (4)
  - ASTHENIA [None]
  - MYOCARDIAL INFARCTION [None]
  - PARAESTHESIA [None]
  - ALOPECIA [None]
